FAERS Safety Report 8492680 (Version 6)
Quarter: 2013Q1

REPORT INFORMATION
  Report Type: Spontaneous
  Country: RO (occurrence: RO)
  Receive Date: 20120403
  Receipt Date: 20130219
  Transmission Date: 20140127
  Serious: Yes (Hospitalization, Other)
  Sender: FDA-Public Use
  Company Number: RO-MILLENNIUM PHARMACEUTICALS, INC.-2012-02163

PATIENT
  Age: 56 Year
  Sex: Female
  Weight: 60 kg

DRUGS (6)
  1. VELCADE [Suspect]
     Indication: PLASMA CELL MYELOMA
     Dosage: 2.45 MG, UNK
     Route: 042
     Dates: start: 20120316, end: 20120319
  2. DEXAMETHASONE [Concomitant]
     Indication: PLASMA CELL MYELOMA
     Dosage: 16 MG, UNK
     Route: 042
     Dates: start: 20120316, end: 20120320
  3. OMEPRAZOLE [Concomitant]
     Indication: PLASMA CELL MYELOMA
     Dosage: 20 MG, UNK
     Route: 048
     Dates: start: 20120316, end: 20120320
  4. MILURIT [Concomitant]
     Indication: PLASMA CELL MYELOMA
     Dosage: 100 MG, UNK
     Route: 048
     Dates: start: 201112
  5. VITAMIN B6 [Concomitant]
     Indication: PLASMA CELL MYELOMA
     Dosage: UNK
     Route: 048
  6. FOLIC ACID [Concomitant]
     Indication: PLASMA CELL MYELOMA
     Dosage: 5 MG, UNK
     Route: 048

REACTIONS (5)
  - Vomiting [Recovering/Resolving]
  - Pyrexia [Recovering/Resolving]
  - Amylase increased [Recovering/Resolving]
  - Blood creatinine increased [Recovering/Resolving]
  - Nausea [Recovering/Resolving]
